FAERS Safety Report 15291983 (Version 3)
Quarter: 2018Q3

REPORT INFORMATION
  Report Type: Report from Study
  Country: None (occurrence: US)
  Receive Date: 20180818
  Receipt Date: 20180929
  Transmission Date: 20181010
  Serious: Yes (Hospitalization, Other)
  Sender: FDA-Public Use
  Company Number: US-ABBVIE-17K-163-2207254-00

PATIENT
  Age: 77 Year
  Sex: Male
  Weight: 77.18 kg

DRUGS (20)
  1. LOSARTAN. [Concomitant]
     Active Substance: LOSARTAN
     Indication: PRODUCT USED FOR UNKNOWN INDICATION
     Route: 048
     Dates: start: 20171211
  2. ATORVASTATIN [Concomitant]
     Active Substance: ATORVASTATIN
     Indication: PRODUCT USED FOR UNKNOWN INDICATION
     Route: 048
     Dates: start: 20171211
  3. ZOLPIDEM [Concomitant]
     Active Substance: ZOLPIDEM\ZOLPIDEM TARTRATE
     Indication: PRODUCT USED FOR UNKNOWN INDICATION
     Route: 048
     Dates: start: 20171211
  4. RIVASTIGMINE. [Concomitant]
     Active Substance: RIVASTIGMINE
     Indication: PRODUCT USED FOR UNKNOWN INDICATION
     Route: 048
     Dates: start: 20171211
  5. OXYBUTYNIN. [Concomitant]
     Active Substance: OXYBUTYNIN CHLORIDE
     Indication: PRODUCT USED FOR UNKNOWN INDICATION
     Route: 048
     Dates: start: 20171211
  6. TAMSULOSIN [Concomitant]
     Active Substance: TAMSULOSIN
     Indication: PRODUCT USED FOR UNKNOWN INDICATION
     Route: 048
     Dates: start: 20171211
  7. ASPIRIN. [Concomitant]
     Active Substance: ASPIRIN
     Indication: PRODUCT USED FOR UNKNOWN INDICATION
     Route: 048
     Dates: start: 20171211
  8. CARBIDOPA/LEVODOPA [Concomitant]
     Active Substance: CARBIDOPA\LEVODOPA
     Indication: PARKINSON^S DISEASE
     Route: 048
  9. FLOMAX [Concomitant]
     Active Substance: TAMSULOSIN HYDROCHLORIDE
     Indication: MICTURITION DISORDER
     Route: 065
  10. CENTRUM VITAMINS [Concomitant]
     Indication: SUPPLEMENTATION THERAPY
     Route: 048
     Dates: start: 20171211
  11. ENTACAPONE. [Concomitant]
     Active Substance: ENTACAPONE
     Indication: PARKINSON^S DISEASE
     Route: 048
  12. CLONAZEPAM. [Concomitant]
     Active Substance: CLONAZEPAM
     Indication: PRODUCT USED FOR UNKNOWN INDICATION
     Route: 048
     Dates: start: 20171211
  13. PANTOPRAZOLE [Concomitant]
     Active Substance: PANTOPRAZOLE
     Indication: PRODUCT USED FOR UNKNOWN INDICATION
     Route: 048
  14. DUOPA [Suspect]
     Active Substance: CARBIDOPA\LEVODOPA
     Indication: PARKINSON^S DISEASE
     Route: 050
     Dates: start: 20171211
  15. PRAMIPEXOLE. [Concomitant]
     Active Substance: PRAMIPEXOLE
     Indication: PARKINSON^S DISEASE
     Route: 048
     Dates: start: 20171211
  16. VITAMIN D3 [Concomitant]
     Active Substance: CHOLECALCIFEROL
     Indication: VITAMIN SUPPLEMENTATION
     Route: 065
  17. MIRTAZAPINE. [Concomitant]
     Active Substance: MIRTAZAPINE
     Indication: PRODUCT USED FOR UNKNOWN INDICATION
     Route: 048
     Dates: start: 20171211
  18. SERTRALINE [Concomitant]
     Active Substance: SERTRALINE HYDROCHLORIDE
     Indication: PRODUCT USED FOR UNKNOWN INDICATION
     Route: 048
     Dates: start: 20171211
  19. ZOLOFT [Concomitant]
     Active Substance: SERTRALINE HYDROCHLORIDE
     Indication: DEPRESSION
  20. XANAX [Concomitant]
     Active Substance: ALPRAZOLAM
     Indication: ANXIETY
     Route: 065

REACTIONS (23)
  - Ligament sprain [Unknown]
  - Hallucination [Recovered/Resolved]
  - Lung infection [Unknown]
  - Cardiac failure congestive [Not Recovered/Not Resolved]
  - Joint injury [Not Recovered/Not Resolved]
  - Fall [Recovering/Resolving]
  - Confusional state [Unknown]
  - Anosmia [Not Recovered/Not Resolved]
  - Ageusia [Not Recovered/Not Resolved]
  - Weight decreased [Recovering/Resolving]
  - Tremor [Recovering/Resolving]
  - Insomnia [Not Recovered/Not Resolved]
  - Pneumonia [Unknown]
  - Renal neoplasm [Not Recovered/Not Resolved]
  - Pleural effusion [Not Recovered/Not Resolved]
  - Pollakiuria [Not Recovered/Not Resolved]
  - Insomnia [Unknown]
  - Vomiting [Unknown]
  - Oedema [Not Recovered/Not Resolved]
  - Device issue [Recovered/Resolved]
  - Freezing phenomenon [Not Recovered/Not Resolved]
  - Freezing phenomenon [Recovering/Resolving]
  - Hypotension [Not Recovered/Not Resolved]

NARRATIVE: CASE EVENT DATE: 201712
